FAERS Safety Report 5118525-2 (Version None)
Quarter: 2006Q3

REPORT INFORMATION
  Report Type: 
  Country: None (occurrence: None)
  Receive Date: 20060927
  Receipt Date: 20060912
  Transmission Date: 20061208
  Serious: Yes (Other)
  Sender: FDA-Public Use
  Company Number: 230027

PATIENT
  Age: 27 Year
  Sex: Male

DRUGS (2)
  1. AVASTIN [Suspect]
     Indication: COLON CANCER
     Dosage: 7.5 MG/KG, Q3W, INTRAVENOUS
     Route: 042
  2. CAPECITABINE (CAPECITABINE) [Suspect]
     Indication: COLON CANCER
     Dosage: 1250 MG/M2, BID, ORAL
     Route: 048

REACTIONS (10)
  - BALANCE DISORDER [None]
  - DIZZINESS [None]
  - DYSPNOEA [None]
  - MUSCULOSKELETAL STIFFNESS [None]
  - NAUSEA [None]
  - PAIN [None]
  - PARAESTHESIA [None]
  - REVERSIBLE POSTERIOR LEUKOENCEPHALOPATHY SYNDROME [None]
  - SOMNOLENCE [None]
  - VOMITING [None]
